FAERS Safety Report 20354963 (Version 1)
Quarter: 2022Q1

REPORT INFORMATION
  Report Type: Spontaneous
  Country: US (occurrence: None)
  Receive Date: 20220119
  Receipt Date: 20220119
  Transmission Date: 20220424
  Serious: Yes (Hospitalization)
  Sender: FDA-Public Use
  Company Number: None

PATIENT
  Age: 79 Year
  Sex: Male

DRUGS (9)
  1. CASIRIVIMAB\IMDEVIMAB [Suspect]
     Active Substance: CASIRIVIMAB\IMDEVIMAB
     Indication: COVID-19
     Dosage: FREQUENCY : ONCE;?
     Route: 058
     Dates: start: 20220105, end: 20220105
  2. cholecalciferol (VITAMIN D3) [Concomitant]
  3. cyanocobalamin (VITAMIN B-12) [Concomitant]
  4. fenofibrate (TRICOR) [Concomitant]
  5. hydroCHLOROthiazide (MICROZIDE) [Concomitant]
  6. lisinopriL (ZestRIL) [Concomitant]
  7. aspirin 81 mg chewable tablet [Concomitant]
  8. cyanocobalamin/folic acid (VITAMIN B12-FOLIC ACID) 5 [Concomitant]
  9. latanoprost (XALATAN) 0.005 % ophthalmic solution [Concomitant]

REACTIONS (6)
  - Acute respiratory failure [None]
  - Asthenia [None]
  - Oxygen saturation decreased [None]
  - Pneumonia [None]
  - Pneumonia viral [None]
  - Fibrin D dimer increased [None]

NARRATIVE: CASE EVENT DATE: 20220106
